FAERS Safety Report 8020044-0 (Version None)
Quarter: 2012Q1

REPORT INFORMATION
  Report Type: 
  Country: None (occurrence: None)
  Receive Date: 20120103
  Receipt Date: 20111221
  Transmission Date: 20120608
  Serious: Yes (Other)
  Sender: FDA-Public Use
  Company Number: DE-TEVA-314604GER

PATIENT
  Age: 70 Year
  Sex: Male
  Weight: 73 kg

DRUGS (5)
  1. METHYLPREDNISOLONE [Concomitant]
     Route: 048
  2. AMLODIPINE [Concomitant]
     Indication: HYPERTENSION
     Route: 048
  3. PROTELOS [Concomitant]
     Indication: OSTEOPOROSIS
     Route: 048
     Dates: start: 20101201
  4. LEFLUNOMIDE [Suspect]
     Dosage: 20 MILLIGRAM;
     Route: 048
     Dates: start: 20091201, end: 20110801
  5. RAMIPRIL 5 MG/25 MG [Concomitant]
     Indication: HYPERTENSION
     Route: 048

REACTIONS (4)
  - GAIT DISTURBANCE [None]
  - POLYNEUROPATHY [None]
  - PERONEAL NERVE PALSY [None]
  - MUSCULAR WEAKNESS [None]
